FAERS Safety Report 5497458-6 (Version None)
Quarter: 2007Q4

REPORT INFORMATION
  Report Type: 
  Country: None (occurrence: None)
  Receive Date: 20071025
  Receipt Date: 20061116
  Transmission Date: 20080405
  Serious: No
  Sender: FDA-Public Use
  Company Number: A0627879A

PATIENT
  Sex: Female

DRUGS (3)
  1. ADVAIR DISKUS 100/50 [Suspect]
  2. TYLENOL (CAPLET) [Suspect]
     Indication: OSTEOPOROSIS
     Dosage: 650MG AS REQUIRED
     Route: 048
     Dates: start: 20060601
  3. VITAMINS [Concomitant]

REACTIONS (3)
  - FATIGUE [None]
  - MYALGIA [None]
  - PAIN [None]
